FAERS Safety Report 12945585 (Version 3)
Quarter: 2017Q1

REPORT INFORMATION
  Report Type: Report from Study
  Country: US (occurrence: US)
  Receive Date: 20161115
  Receipt Date: 20170103
  Transmission Date: 20170428
  Serious: Yes (Hospitalization, Other)
  Sender: FDA-Public Use
  Company Number: US-MYLANLABS-2016M1049576

PATIENT

DRUGS (29)
  1. FLUTICASONE. [Concomitant]
     Active Substance: FLUTICASONE
     Indication: PRODUCT USED FOR UNKNOWN INDICATION
  2. NAFTIFINE [Concomitant]
     Active Substance: NAFTIFINE
     Indication: PRODUCT USED FOR UNKNOWN INDICATION
     Dosage: 1 %
  3. AMBIEN [Concomitant]
     Active Substance: ZOLPIDEM TARTRATE
     Indication: PRODUCT USED FOR UNKNOWN INDICATION
     Dosage: 5 MG, PM
     Route: 048
  4. EFINACONAZOLE [Concomitant]
     Active Substance: EFINACONAZOLE
     Indication: PRODUCT USED FOR UNKNOWN INDICATION
  5. GABAPENTIN. [Concomitant]
     Active Substance: GABAPENTIN
     Indication: PRODUCT USED FOR UNKNOWN INDICATION
  6. SPIRONOLACTONE. [Concomitant]
     Active Substance: SPIRONOLACTONE
     Indication: PRODUCT USED FOR UNKNOWN INDICATION
  7. LATUDA [Concomitant]
     Active Substance: LURASIDONE HYDROCHLORIDE
     Indication: INTENTIONAL SELF-INJURY
     Dosage: 60 MG, AM
     Route: 048
  8. CLOZAPINE. [Suspect]
     Active Substance: CLOZAPINE
     Dosage: 100 MG, HS
  9. LORAZEPAM. [Concomitant]
     Active Substance: LORAZEPAM
     Indication: PRODUCT USED FOR UNKNOWN INDICATION
  10. HEMORRHOIDAL                       /00116302/ [Concomitant]
     Indication: PRODUCT USED FOR UNKNOWN INDICATION
  11. SUMATRIPTAN. [Concomitant]
     Active Substance: SUMATRIPTAN
     Indication: PRODUCT USED FOR UNKNOWN INDICATION
  12. GLYCERIN                           /00200601/ [Concomitant]
     Active Substance: GLYCERIN
     Indication: PRODUCT USED FOR UNKNOWN INDICATION
  13. PSYLLIUM                           /00029101/ [Concomitant]
     Indication: PRODUCT USED FOR UNKNOWN INDICATION
  14. NALTREXONE [Concomitant]
     Active Substance: NALTREXONE
     Indication: INTENTIONAL SELF-INJURY
     Dosage: 50 MG, QD
     Route: 048
  15. CLOZAPINE. [Suspect]
     Active Substance: CLOZAPINE
     Indication: HALLUCINATION, AUDITORY
     Dosage: 25 MG, AM
  16. LEVOTHYROXINE. [Concomitant]
     Active Substance: LEVOTHYROXINE
     Indication: PRODUCT USED FOR UNKNOWN INDICATION
  17. ATIVAN [Concomitant]
     Active Substance: LORAZEPAM
     Indication: PRODUCT USED FOR UNKNOWN INDICATION
     Dosage: 1 MG, TID
     Route: 048
  18. FLUOXETINE [Concomitant]
     Active Substance: FLUOXETINE HYDROCHLORIDE
     Indication: PRODUCT USED FOR UNKNOWN INDICATION
     Dosage: 60 MG, AM
     Route: 048
  19. PALIPERIDONE. [Concomitant]
     Active Substance: PALIPERIDONE
     Indication: PRODUCT USED FOR UNKNOWN INDICATION
  20. THORAZINE [Concomitant]
     Active Substance: CHLORPROMAZINE
     Indication: PRODUCT USED FOR UNKNOWN INDICATION
     Dosage: 100 MG, TID
     Route: 048
  21. METFORMIN [Concomitant]
     Active Substance: METFORMIN HYDROCHLORIDE
     Indication: PRODUCT USED FOR UNKNOWN INDICATION
  22. PROTONIX                           /00661201/ [Concomitant]
     Active Substance: OMEPRAZOLE
     Indication: PRODUCT USED FOR UNKNOWN INDICATION
  23. SENNA                              /00142201/ [Concomitant]
     Active Substance: SENNA LEAF
     Indication: PRODUCT USED FOR UNKNOWN INDICATION
  24. CLOZAPINE. [Suspect]
     Active Substance: CLOZAPINE
     Indication: DISRUPTIVE MOOD DYSREGULATION DISORDER
     Dosage: 150 MG, HS
  25. TOPAMAX [Concomitant]
     Active Substance: TOPIRAMATE
     Indication: PRODUCT USED FOR UNKNOWN INDICATION
  26. KETOCONAZOLE. [Concomitant]
     Active Substance: KETOCONAZOLE
     Indication: PRODUCT USED FOR UNKNOWN INDICATION
     Dosage: 2 %
  27. FISH OIL [Concomitant]
     Active Substance: FISH OIL
     Indication: PRODUCT USED FOR UNKNOWN INDICATION
  28. DOCUSATE [Concomitant]
     Active Substance: DOCUSATE
     Indication: PRODUCT USED FOR UNKNOWN INDICATION
  29. LATUDA [Concomitant]
     Active Substance: LURASIDONE HYDROCHLORIDE
     Dosage: 60 MG, BID
     Route: 048

REACTIONS (6)
  - Aggression [Not Recovered/Not Resolved]
  - Abnormal behaviour [Not Recovered/Not Resolved]
  - Hallucination, auditory [Not Recovered/Not Resolved]
  - Suicidal behaviour [Not Recovered/Not Resolved]
  - Toothache [Recovering/Resolving]
  - Agitation [Not Recovered/Not Resolved]

NARRATIVE: CASE EVENT DATE: 2016
